FAERS Safety Report 21533993 (Version 1)
Quarter: 2022Q4

REPORT INFORMATION
  Report Type: Spontaneous
  Country: NL (occurrence: NL)
  Receive Date: 20221101
  Receipt Date: 20221101
  Transmission Date: 20230112
  Serious: Yes (Other)
  Sender: FDA-Public Use
  Company Number: None

PATIENT
  Sex: Male
  Weight: 93 kg

DRUGS (1)
  1. PREDNISOLONE [Suspect]
     Active Substance: PREDNISOLONE
     Indication: Fibromyalgia
     Dosage: 15 MILLIGRAM DAILY; 1 X PER DAY 3 PIECES IN THE MORNING, PREDNISOLON TABLET  5MG / BRAND NAME NOT SP
     Dates: start: 20220912

REACTIONS (4)
  - Arrhythmia [Not Recovered/Not Resolved]
  - Renal pain [Not Recovered/Not Resolved]
  - Blood pressure increased [Not Recovered/Not Resolved]
  - Head discomfort [Not Recovered/Not Resolved]
